FAERS Safety Report 24159475 (Version 1)
Quarter: 2024Q3

REPORT INFORMATION
  Report Type: Spontaneous
  Country: US (occurrence: US)
  Receive Date: 20240731
  Receipt Date: 20240731
  Transmission Date: 20241017
  Serious: No
  Sender: AURINIA PHARMACEUTICALS
  Company Number: US-AURINIA PHARMACEUTICALS INC.-AUR-005801

PATIENT

DRUGS (1)
  1. LUPKYNIS [Suspect]
     Active Substance: VOCLOSPORIN
     Indication: Product used for unknown indication
     Dosage: 47.4 MILLIGRAM, 6 CAPSULES EVERY DAY
     Route: 048

REACTIONS (3)
  - Protein total abnormal [Recovering/Resolving]
  - Fatigue [Unknown]
  - Product packaging difficult to open [Unknown]
